FAERS Safety Report 9147268 (Version 2)
Quarter: 2013Q2

REPORT INFORMATION
  Report Type: Spontaneous
  Country: GB (occurrence: GB)
  Receive Date: 20130307
  Receipt Date: 20130423
  Transmission Date: 20140414
  Serious: Yes (Hospitalization)
  Sender: FDA-Public Use
  Company Number: GB-UCBSA-080020

PATIENT
  Sex: Male

DRUGS (1)
  1. DEPONIT [Suspect]
     Dosage: DOSE : 5 MG

REACTIONS (2)
  - Hospitalisation [Unknown]
  - Drug administration error [Unknown]
